FAERS Safety Report 9332765 (Version 4)
Quarter: 2013Q4

REPORT INFORMATION
  Report Type: Report from Study
  Country: DE (occurrence: TR)
  Receive Date: 20130606
  Receipt Date: 20131104
  Transmission Date: 20140711
  Serious: Yes (Death, Life-Threatening, Hospitalization, Other)
  Sender: FDA-Public Use
  Company Number: DE-ACTELION-A-US2013-84125

PATIENT
  Age: 42 Year
  Sex: Male
  Weight: 118 kg

DRUGS (9)
  1. VENTAVIS [Suspect]
     Indication: PULMONARY HYPERTENSION
     Dosage: UNK, X6/DAY
     Route: 055
     Dates: start: 20130404
  2. TRACLEER [Concomitant]
     Indication: PRODUCT USED FOR UNKNOWN INDICATION
     Route: 048
  3. LANTUS [Concomitant]
  4. DIGOXIN [Concomitant]
  5. CLOPIDOGREL [Concomitant]
  6. HYDROCHLOROTHIAZIDE W/IRBESARTAN [Concomitant]
  7. ALDACTONE [Concomitant]
  8. ATIVAN [Concomitant]
  9. CLEXANE [Concomitant]

REACTIONS (11)
  - Cardiac failure [Fatal]
  - Respiratory disorder [Not Recovered/Not Resolved]
  - Muscle rigidity [Not Recovered/Not Resolved]
  - Erythema [Not Recovered/Not Resolved]
  - Renal failure acute [Not Recovered/Not Resolved]
  - Haemodialysis [Not Recovered/Not Resolved]
  - Fluid retention [Not Recovered/Not Resolved]
  - Abdominal distension [Not Recovered/Not Resolved]
  - Local swelling [Not Recovered/Not Resolved]
  - Oedema [Not Recovered/Not Resolved]
  - General physical health deterioration [Unknown]
